FAERS Safety Report 20193137 (Version 2)
Quarter: 2022Q1

REPORT INFORMATION
  Report Type: Spontaneous
  Country: BR (occurrence: BR)
  Receive Date: 20211216
  Receipt Date: 20220119
  Transmission Date: 20220423
  Serious: Yes (Death, Hospitalization)
  Sender: FDA-Public Use
  Company Number: BR-NOVARTISPH-NVSC2021BR288132

PATIENT
  Age: 89 Year
  Sex: Female
  Weight: 70 kg

DRUGS (7)
  1. DIOVAN [Suspect]
     Active Substance: VALSARTAN
     Indication: Hypertension
     Dosage: 1 DOSAGE FORM, QD (1 TABLET OF 320 MG)
     Route: 048
     Dates: end: 202104
  2. ATORVASTATIN [Concomitant]
     Active Substance: ATORVASTATIN
     Indication: Blood cholesterol increased
     Dosage: 1 DOSAGE FORM, QD (1 TAB OF 40 MG)
     Route: 048
     Dates: end: 202104
  3. AMLODIPINE [Concomitant]
     Active Substance: AMLODIPINE BESYLATE
     Indication: Product used for unknown indication
     Dosage: 1 DOSAGE FORM, QD (1 TAB OF 5 MG)
     Route: 048
     Dates: start: 2020, end: 202104
  4. INDAPAMIDE [Concomitant]
     Active Substance: INDAPAMIDE
     Indication: Product used for unknown indication
     Dosage: 1 DOSAGE FORM, QD (1 TAB OF 1.5MG)
     Route: 048
     Dates: end: 202104
  5. ASPIRIN [Concomitant]
     Active Substance: ASPIRIN
     Indication: Product used for unknown indication
     Dosage: 1 DOSAGE FORM, QD (1 TAB OF 100 MG)
     Route: 048
     Dates: end: 202104
  6. EZETIMIBE [Concomitant]
     Active Substance: EZETIMIBE
     Indication: Blood triglycerides increased
     Dosage: 1 DOSAGE FORM, QD (1 TAB OF 10 MG)
     Route: 048
     Dates: end: 202104
  7. PURAN [Concomitant]
     Active Substance: LEVOTHYROXINE SODIUM
     Indication: Product used for unknown indication
     Dosage: 1 DOSAGE FORM, QD (1 TAB OF 50MG)
     Route: 048
     Dates: end: 202104

REACTIONS (3)
  - Pancreatic carcinoma [Fatal]
  - Cardiopulmonary failure [Fatal]
  - Thrombosis [Recovered/Resolved]

NARRATIVE: CASE EVENT DATE: 20210101
